FAERS Safety Report 10143684 (Version 3)
Quarter: 2016Q4

REPORT INFORMATION
  Report Type: Spontaneous
  Country: US (occurrence: US)
  Receive Date: 20140430
  Receipt Date: 20161007
  Transmission Date: 20170206
  Serious: No
  Sender: FDA-Public Use
  Company Number: US-PFIZER INC-2014116520

PATIENT
  Age: 56 Year
  Sex: Female
  Weight: 86.62 kg

DRUGS (6)
  1. COENZYME Q10 [Concomitant]
     Active Substance: UBIDECARENONE
     Indication: SUPPLEMENTATION THERAPY
     Dosage: 100 MG, 1X/DAY
  2. VITAMIN D [Concomitant]
     Active Substance: CHOLECALCIFEROL
     Indication: CALCIUM DEFICIENCY
     Dosage: 2000 IU, UNK
  3. CRANBERRY. [Concomitant]
     Active Substance: CRANBERRY
     Indication: URINARY TRACT INFECTION
     Dosage: 1 DF, DAILY
  4. AROMASIN [Suspect]
     Active Substance: EXEMESTANE
     Indication: BREAST CANCER STAGE I
     Dosage: 25 MG, 1X/DAY
     Route: 048
     Dates: start: 201210
  5. AROMASIN [Interacting]
     Active Substance: EXEMESTANE
     Indication: ADJUVANT THERAPY
     Dosage: 25 MG, 1X/DAY
     Route: 048
     Dates: start: 201211
  6. KRILL OIL [Concomitant]
     Active Substance: DIETARY SUPPLEMENT
     Indication: DRY EYE
     Dosage: 1000 MG, UNK

REACTIONS (6)
  - Hot flush [Not Recovered/Not Resolved]
  - Blister [Unknown]
  - Photosensitivity reaction [Not Recovered/Not Resolved]
  - Pruritus [Unknown]
  - Fatigue [Not Recovered/Not Resolved]
  - Food interaction [Unknown]

NARRATIVE: CASE EVENT DATE: 201307
